FAERS Safety Report 4685410-X (Version None)
Quarter: 2005Q2

REPORT INFORMATION
  Report Type: 
  Country: None (occurrence: None)
  Receive Date: 20050608
  Receipt Date: 20050606
  Transmission Date: 20051028
  Serious: Yes (Hospitalization)
  Sender: FDA-Public Use
  Company Number: 405763

PATIENT
  Age: 72 Year
  Sex: Female

DRUGS (22)
  1. CARVEDILOL [Suspect]
     Indication: BLOOD PRESSURE MANAGEMENT
     Route: 048
     Dates: start: 20050420
  2. CEFTRIAXONE [Suspect]
     Indication: INFECTION PROPHYLAXIS
     Dosage: 1G TWICE PER DAY
     Route: 042
     Dates: start: 20050501, end: 20050502
  3. CALCITRIOL [Suspect]
     Dates: start: 20050422
  4. CLOPIDOGREL BISULFATE [Suspect]
     Indication: ACUTE CORONARY SYNDROME
     Dosage: 75MG PER DAY
     Route: 048
     Dates: start: 20050419, end: 20050502
  5. CEFACLOR [Suspect]
     Indication: INFECTION PROPHYLAXIS
     Dosage: 250MG PER DAY
     Route: 048
     Dates: start: 20050419, end: 20050422
  6. ZANTAC [Suspect]
     Dosage: 150MG PER DAY
     Route: 048
     Dates: start: 20050419, end: 20050419
  7. ENALAPRIL MALEATE [Suspect]
     Indication: BLOOD PRESSURE MANAGEMENT
     Dosage: 2.5MG PER DAY
     Route: 048
     Dates: start: 20050419, end: 20050502
  8. ATORVASTATIN CALCIUM [Suspect]
     Dosage: 10MG PER DAY
     Route: 048
     Dates: start: 20050419, end: 20050502
  9. RISEDRONATE [Concomitant]
     Dates: start: 20050422
  10. ASPARA-CA [Concomitant]
     Dates: start: 20050422
  11. BUFFERIN [Concomitant]
     Dates: start: 20050419
  12. HEPARIN SODIUM [Concomitant]
     Dates: start: 20050419, end: 20050419
  13. NITOROL [Concomitant]
     Dates: start: 20050419, end: 20050419
  14. MEPIVACAINE HCL [Concomitant]
     Dates: start: 20050419, end: 20050419
  15. OMNIPAQUE 140 [Concomitant]
     Dates: start: 20050419, end: 20050419
  16. LIDOCAINE [Concomitant]
     Dates: start: 20050419, end: 20050419
  17. NITROGLYCERIN [Concomitant]
     Dates: start: 20050419, end: 20050419
  18. GTN [Concomitant]
     Dates: start: 20050419, end: 20050419
  19. HEPARIN SODIUM [Concomitant]
     Dates: start: 20050419, end: 20050422
  20. FUROSEMIDE [Concomitant]
     Dates: start: 20050420, end: 20050420
  21. PANALDINE [Concomitant]
     Dates: start: 20050502
  22. ACETAMINOPHEN [Concomitant]
     Dates: start: 20050429, end: 20050429

REACTIONS (3)
  - BLOOD ALKALINE PHOSPHATASE INCREASED [None]
  - LIVER FUNCTION TEST ABNORMAL [None]
  - PYREXIA [None]
